FAERS Safety Report 25084323 (Version 1)
Quarter: 2025Q1

REPORT INFORMATION
  Report Type: Spontaneous
  Country: JP (occurrence: JP)
  Receive Date: 20250317
  Receipt Date: 20250317
  Transmission Date: 20250408
  Serious: Yes (Hospitalization, Other)
  Sender: MERCK SHARP & DOHME LLC
  Company Number: JP-009507513-2263544

PATIENT
  Age: 61 Year
  Sex: Female

DRUGS (2)
  1. KEYTRUDA [Suspect]
     Active Substance: PEMBROLIZUMAB
     Indication: Squamous cell carcinoma of the cervix
     Route: 041
  2. CISPLATIN [Suspect]
     Active Substance: CISPLATIN
     Route: 041

REACTIONS (5)
  - Malaise [Unknown]
  - Adrenal insufficiency [Unknown]
  - Thyroid disorder [Unknown]
  - Inappropriate schedule of product administration [Unknown]
  - Blood creatinine increased [Unknown]
